FAERS Safety Report 4791399-5 (Version None)
Quarter: 2005Q4

REPORT INFORMATION
  Report Type: 
  Country: None (occurrence: None)
  Receive Date: 20051007
  Receipt Date: 20050926
  Transmission Date: 20060501
  Serious: Yes (Hospitalization)
  Sender: FDA-Public Use
  Company Number: GB-ROCHE-419207

PATIENT
  Age: 15 Year
  Sex: Male

DRUGS (1)
  1. ROACCUTANE [Suspect]
     Indication: ACNE
     Route: 048
     Dates: start: 20040407

REACTIONS (3)
  - ACUTE ABDOMEN [None]
  - HEREDITARY ANGIOEDEMA [None]
  - INTESTINAL GANGRENE [None]
